FAERS Safety Report 7050499-X (Version None)
Quarter: 2010Q4

REPORT INFORMATION
  Report Type: 
  Country: None (occurrence: None)
  Receive Date: 20101018
  Receipt Date: 20101005
  Transmission Date: 20110411
  Serious: Yes (Other)
  Sender: FDA-Public Use
  Company Number: BR-ELI_LILLY_AND_COMPANY-BR201009000722

PATIENT
  Age: 34 Year
  Sex: Female

DRUGS (2)
  1. ZYPREXA [Suspect]
     Dosage: 2.5 MG, UNKNOWN
     Route: 048
     Dates: start: 20100826, end: 20100914
  2. ALPRAZ [Concomitant]
     Indication: FEAR
     Dosage: 1 MG, UNKNOWN
     Route: 065
     Dates: start: 20091001

REACTIONS (14)
  - ACNE [None]
  - AGITATION [None]
  - ANTISOCIAL BEHAVIOUR [None]
  - ASTHENIA [None]
  - CONSTIPATION [None]
  - GASTROINTESTINAL PAIN [None]
  - HAEMATOCHEZIA [None]
  - HYPERSENSITIVITY [None]
  - INTESTINAL HAEMORRHAGE [None]
  - MUSCULAR WEAKNESS [None]
  - NERVOUSNESS [None]
  - SEBORRHOEA [None]
  - SUICIDAL IDEATION [None]
  - YELLOW SKIN [None]
